FAERS Safety Report 4871170-6 (Version None)
Quarter: 2005Q4

REPORT INFORMATION
  Report Type: 
  Country: None (occurrence: None)
  Receive Date: 20051229
  Receipt Date: 20051214
  Transmission Date: 20060501
  Serious: Yes (Other)
  Sender: FDA-Public Use
  Company Number: BE200512002507

PATIENT
  Sex: Male

DRUGS (1)
  1. TADALAFIL (TADALAFIL) TABLET [Suspect]
     Indication: ERECTILE DYSFUNCTION
     Dosage: BUCCAL
     Route: 002

REACTIONS (1)
  - EYE OEDEMA [None]
